FAERS Safety Report 12438742 (Version 1)
Quarter: 2016Q2

REPORT INFORMATION
  Report Type: Spontaneous
  Country: US (occurrence: US)
  Receive Date: 20160606
  Receipt Date: 20160606
  Transmission Date: 20160815
  Serious: Yes (Other)
  Sender: FDA-Public Use
  Company Number: US-TEVA-664143USA

PATIENT
  Sex: Female

DRUGS (2)
  1. COPAXONE [Suspect]
     Active Substance: GLATIRAMER ACETATE
     Indication: MULTIPLE SCLEROSIS
     Dosage: UNKNOWN FORM STRENGTH
     Route: 065
  2. NOVANTRONE [Suspect]
     Active Substance: MITOXANTRONE HYDROCHLORIDE
     Route: 065

REACTIONS (13)
  - Injection site reaction [Unknown]
  - Bladder disorder [Unknown]
  - Injection site bruising [Unknown]
  - Gastrointestinal disorder [Unknown]
  - Urinary tract infection [Unknown]
  - Immunodeficiency [Unknown]
  - Functional gastrointestinal disorder [Unknown]
  - Chromaturia [Unknown]
  - Adverse event [Unknown]
  - Inappropriate schedule of drug administration [Unknown]
  - Secondary progressive multiple sclerosis [Unknown]
  - Multiple sclerosis relapse [Unknown]
  - Hypoaesthesia [Unknown]
